FAERS Safety Report 16956734 (Version 1)
Quarter: 2019Q4

REPORT INFORMATION
  Report Type: Spontaneous
  Country: FR (occurrence: FR)
  Receive Date: 20191024
  Receipt Date: 20191024
  Transmission Date: 20200122
  Serious: Yes (Other)
  Sender: FDA-Public Use
  Company Number: FR-MYLANLABS-2019M1099944

PATIENT
  Age: 53 Year
  Sex: Female

DRUGS (4)
  1. SORAFENIB [Concomitant]
     Active Substance: SORAFENIB
     Dosage: 400 MILLIGRAM, QD
     Route: 065
  2. DOXYCYCLINE. [Suspect]
     Active Substance: DOXYCYCLINE
     Indication: ACNE CYSTIC
     Dosage: 200 MILLIGRAM, QD
     Route: 048
  3. SORAFENIB [Concomitant]
     Active Substance: SORAFENIB
     Indication: HEPATOCELLULAR CARCINOMA
     Dosage: 800 MILLIGRAM, QD
     Route: 065
  4. ZINC. [Suspect]
     Active Substance: ZINC
     Indication: ACNE CYSTIC
     Dosage: UNK
     Route: 048

REACTIONS (1)
  - Drug ineffective [Unknown]
